FAERS Safety Report 6347418-8 (Version None)
Quarter: 2009Q3

REPORT INFORMATION
  Report Type: 
  Country: None (occurrence: None)
  Receive Date: 20090910
  Receipt Date: 20090902
  Transmission Date: 20100115
  Serious: Yes (Other)
  Sender: FDA-Public Use
  Company Number: JP-ASTRAZENECA-2009SE11468

PATIENT
  Age: 66 Year
  Sex: Male

DRUGS (1)
  1. XYLOCAINE [Suspect]
     Indication: INFILTRATION ANAESTHESIA
     Route: 058
     Dates: start: 20090824, end: 20090824

REACTIONS (1)
  - SHOCK [None]
